FAERS Safety Report 11271764 (Version 2)
Quarter: 2015Q3

REPORT INFORMATION
  Report Type: Spontaneous
  Country: AU (occurrence: AU)
  Receive Date: 20150715
  Receipt Date: 20150817
  Transmission Date: 20151125
  Serious: Yes (Death, Other)
  Sender: FDA-Public Use
  Company Number: AU-ROCHE-1607329

PATIENT
  Sex: Female

DRUGS (1)
  1. METALYSE [Suspect]
     Active Substance: TENECTEPLASE
     Indication: MYOCARDIAL INFARCTION
     Dosage: FORM STRENGTH: 10 ML / 50 MG
     Route: 065

REACTIONS (4)
  - Extra dose administered [Unknown]
  - Death [Fatal]
  - Drug ineffective [Unknown]
  - Product quality issue [Unknown]
